FAERS Safety Report 16004430 (Version 1)
Quarter: 2019Q1

REPORT INFORMATION
  Report Type: Spontaneous
  Country: US (occurrence: US)
  Receive Date: 20190225
  Receipt Date: 20190225
  Transmission Date: 20190418
  Serious: Yes (Other)
  Sender: FDA-Public Use
  Company Number: None

PATIENT
  Age: 32 Year
  Sex: Female
  Weight: 62.1 kg

DRUGS (1)
  1. SENSODYNE COMPLETE PROTECTION EXTRA FRESH [Suspect]
     Active Substance: STANNOUS FLUORIDE
     Indication: SENSITIVITY OF TEETH
     Route: 048
     Dates: start: 20190203, end: 20190224

REACTIONS (7)
  - Cheilitis [None]
  - Lip swelling [None]
  - Glossitis [None]
  - Oral discomfort [None]
  - Lip erythema [None]
  - Lip dry [None]
  - Tongue dry [None]

NARRATIVE: CASE EVENT DATE: 20190225
